FAERS Safety Report 7719583-9 (Version None)
Quarter: 2011Q3

REPORT INFORMATION
  Report Type: 
  Country: None (occurrence: None)
  Receive Date: 20110830
  Receipt Date: 20110824
  Transmission Date: 20111222
  Serious: Yes (Hospitalization, Other)
  Sender: FDA-Public Use
  Company Number: US-ABBOTT-11P-163-0848323-00

PATIENT
  Sex: Female
  Weight: 93.07 kg

DRUGS (17)
  1. PLAVIX [Concomitant]
     Indication: CORONARY ARTERIAL STENT INSERTION
  2. NITROGLYCERIN [Concomitant]
     Indication: PRODUCT USED FOR UNKNOWN INDICATION
  3. MULTI-VITAMIN [Concomitant]
     Indication: PRODUCT USED FOR UNKNOWN INDICATION
     Route: 048
  4. HUMIRA [Suspect]
     Indication: RHEUMATOID ARTHRITIS
     Route: 048
     Dates: start: 20080101
  5. HUMIRA [Suspect]
     Route: 058
     Dates: end: 20080101
  6. VICODIN [Concomitant]
     Indication: PRODUCT USED FOR UNKNOWN INDICATION
  7. CALCIUM CARBONATE [Concomitant]
     Indication: PRODUCT USED FOR UNKNOWN INDICATION
     Route: 048
  8. ASPIRIN [Concomitant]
     Indication: PRODUCT USED FOR UNKNOWN INDICATION
     Route: 048
  9. HUMIRA [Suspect]
     Indication: RHEUMATOID ARTHRITIS
     Route: 058
  10. LOPRESSOR [Concomitant]
     Indication: HYPERTENSION
  11. PLAVIX [Concomitant]
     Indication: MYOCARDIAL INFARCTION
     Dates: start: 20080101
  12. LUCOVOREN [Concomitant]
     Indication: PRODUCT USED FOR UNKNOWN INDICATION
  13. NORVASC [Concomitant]
     Indication: HYPERTENSION
  14. LIPITOR [Concomitant]
     Indication: BLOOD CHOLESTEROL INCREASED
  15. CRESTOR [Concomitant]
     Indication: BLOOD CHOLESTEROL INCREASED
  16. METHOTREXATE [Concomitant]
     Indication: PRODUCT USED FOR UNKNOWN INDICATION
  17. LISINOPRIL [Concomitant]
     Indication: HYPERTENSION

REACTIONS (12)
  - DYSPNOEA [None]
  - MYALGIA [None]
  - MYOCARDIAL INFARCTION [None]
  - DYSPEPSIA [None]
  - DRUG DOSE OMISSION [None]
  - INJECTION SITE PAIN [None]
  - PARAESTHESIA [None]
  - MUSCLE SPASMS [None]
  - ARTERIAL OCCLUSIVE DISEASE [None]
  - OPERATIVE HAEMORRHAGE [None]
  - DEVICE MALFUNCTION [None]
  - HYPOAESTHESIA [None]
